FAERS Safety Report 20438064 (Version 2)
Quarter: 2022Q2

REPORT INFORMATION
  Report Type: Report from Study
  Country: US (occurrence: US)
  Receive Date: 20220207
  Receipt Date: 20220519
  Transmission Date: 20220721
  Serious: Yes (Hospitalization, Other)
  Sender: FDA-Public Use
  Company Number: US-EXELIXIS-XL18422048543

PATIENT
  Age: 82 Year
  Sex: Male
  Weight: 90.6 kg

DRUGS (6)
  1. IPILIMUMAB [Suspect]
     Active Substance: IPILIMUMAB
     Indication: Penile squamous cell carcinoma
     Dosage: 1 MILLIGRAM/KILOGRAM OVER 90 MINUTES ON DAY 1
     Route: 042
     Dates: start: 20190501
  2. NIVOLUMAB [Suspect]
     Active Substance: NIVOLUMAB
     Indication: Penile squamous cell carcinoma
     Route: 042
     Dates: start: 20190501
  3. NIVOLUMAB [Suspect]
     Active Substance: NIVOLUMAB
     Route: 042
  4. CABOZANTINIB [Suspect]
     Active Substance: CABOZANTINIB
     Indication: Penile squamous cell carcinoma
     Dosage: 40 MILLIGRAM
     Route: 048
     Dates: start: 20190501, end: 20211223
  5. CABOZANTINIB [Suspect]
     Active Substance: CABOZANTINIB
     Route: 048
  6. NIVOLUMAB [Suspect]
     Active Substance: NIVOLUMAB
     Dosage: 480 MILLIGRAM ON DAY 1
     Route: 042

REACTIONS (2)
  - Cardiac failure [Recovered/Resolved]
  - Delirium [Recovered/Resolved]

NARRATIVE: CASE EVENT DATE: 20211223
